FAERS Safety Report 7960431-X (Version None)
Quarter: 2011Q4

REPORT INFORMATION
  Report Type: 
  Country: None (occurrence: None)
  Receive Date: 20111206
  Receipt Date: 20111128
  Transmission Date: 20120403
  Serious: Yes (Hospitalization, Other)
  Sender: FDA-Public Use
  Company Number: US-US-EMD SERONO, INC.-7098600

PATIENT
  Sex: Female
  Weight: 118 kg

DRUGS (4)
  1. REBIF [Suspect]
     Route: 058
     Dates: start: 20110818
  2. ACETAMINOPHEN [Concomitant]
     Indication: PREMEDICATION
  3. VASERETIC [Suspect]
     Indication: HYPERTENSION
     Dates: end: 20111101
  4. REBIF [Suspect]
     Indication: MULTIPLE SCLEROSIS
     Route: 058
     Dates: start: 20110527

REACTIONS (10)
  - ESCHERICHIA INFECTION [None]
  - JOINT SWELLING [None]
  - BALANCE DISORDER [None]
  - ASTHENIA [None]
  - RENAL FAILURE ACUTE [None]
  - INJECTION SITE ERYTHEMA [None]
  - BLOOD PRESSURE INCREASED [None]
  - FALL [None]
  - HEADACHE [None]
  - DEHYDRATION [None]
